FAERS Safety Report 11169273 (Version 1)
Quarter: 2015Q2

REPORT INFORMATION
  Report Type: Spontaneous
  Country: DE (occurrence: DE)
  Receive Date: 20150605
  Receipt Date: 20150605
  Transmission Date: 20150821
  Serious: Yes (Other)
  Sender: FDA-Public Use
  Company Number: GXKR2015DE002599

PATIENT

DRUGS (3)
  1. FOLSAEURE [Concomitant]
     Active Substance: FOLIC ACID
     Indication: VITAMIN SUPPLEMENTATION
     Route: 048
     Dates: start: 20140901, end: 20150103
  2. CANDESARTAN+HYDROCHLOROTHIAZIDE [Suspect]
     Active Substance: CANDESARTAN CILEXETIL\HYDROCHLOROTHIAZIDE
     Indication: HYPERTENSION
     Dosage: 12.5 [MG/D] / 8 [MG/D] (0.-21.1 GESTATIONAL WEEK)
     Route: 048
     Dates: start: 20140406, end: 20140901
  3. METHYLDOPA. [Concomitant]
     Active Substance: METHYLDOPA
     Indication: HYPERTENSION
     Dosage: 750 [MG/D] (21.2-38.6 GESTATIONAL WEEK)
     Route: 048
     Dates: start: 20140902, end: 20150103

REACTIONS (1)
  - Oligohydramnios [Recovered/Resolved]
